FAERS Safety Report 10063775 (Version 1)
Quarter: 2014Q2

REPORT INFORMATION
  Report Type: Spontaneous
  Country: US (occurrence: US)
  Receive Date: 20140408
  Receipt Date: 20140408
  Transmission Date: 20141212
  Serious: Yes (Other)
  Sender: FDA-Public Use
  Company Number: US-ROCHE-1379215

PATIENT
  Sex: Male

DRUGS (2)
  1. XOLAIR [Suspect]
     Indication: ASTHMA
     Route: 065
  2. XOLAIR [Suspect]
     Indication: HYPERSENSITIVITY

REACTIONS (9)
  - Atrial fibrillation [Unknown]
  - Joint warmth [Unknown]
  - Joint swelling [Unknown]
  - Joint range of motion decreased [Unknown]
  - Influenza like illness [Unknown]
  - Dysphonia [Unknown]
  - Pain in jaw [Unknown]
  - Lipoma [Unknown]
  - Eosinophil count abnormal [Unknown]
